FAERS Safety Report 4925751-1 (Version None)
Quarter: 2006Q1

REPORT INFORMATION
  Report Type: 
  Country: None (occurrence: None)
  Receive Date: 20060228
  Receipt Date: 20050203
  Transmission Date: 20060701
  Serious: Yes (Other)
  Sender: FDA-Public Use
  Company Number: US-GLAXOSMITHKLINE-A0543714A

PATIENT
  Age: 41 Year
  Sex: Female

DRUGS (4)
  1. LAMICTAL [Suspect]
     Indication: BIPOLAR DISORDER
     Route: 048
     Dates: start: 20040524, end: 20050201
  2. CELEXA [Concomitant]
  3. KLONOPIN [Concomitant]
  4. ALEVE [Concomitant]

REACTIONS (3)
  - MUCOUS MEMBRANE DISORDER [None]
  - RASH PRURITIC [None]
  - STEVENS-JOHNSON SYNDROME [None]
